FAERS Safety Report 18623073 (Version 3)
Quarter: 2020Q4

REPORT INFORMATION
  Report Type: Report from Study
  Country: FR (occurrence: FR)
  Receive Date: 20201216
  Receipt Date: 20201218
  Transmission Date: 20210114
  Serious: Yes (Other)
  Sender: FDA-Public Use
  Company Number: FR-ASTRAZENECA-2020SF52468

PATIENT
  Age: 791 Month
  Sex: Male
  Weight: 100 kg

DRUGS (5)
  1. ACALABRUTINIB. [Suspect]
     Active Substance: ACALABRUTINIB
     Indication: CHRONIC LYMPHOCYTIC LEUKAEMIA
     Route: 048
     Dates: start: 20200915
  2. VALACICLOVIR [Concomitant]
     Active Substance: VALACYCLOVIR HYDROCHLORIDE
  3. ELIQUIS [Concomitant]
     Active Substance: APIXABAN
  4. BACTRIM [Concomitant]
     Active Substance: SULFAMETHOXAZOLE\TRIMETHOPRIM
     Dosage: ONCE DAILY
  5. FLECAINE [Concomitant]
     Active Substance: FLECAINIDE

REACTIONS (6)
  - Neutrophil count abnormal [Not Recovered/Not Resolved]
  - White blood cell count abnormal [Recovering/Resolving]
  - Haemoglobin decreased [Recovered/Resolved]
  - Platelet count abnormal [Not Recovered/Not Resolved]
  - Lymphocyte count abnormal [Recovering/Resolving]
  - Testicular pain [Recovered/Resolved]

NARRATIVE: CASE EVENT DATE: 20201005
